FAERS Safety Report 24319622 (Version 3)
Quarter: 2025Q2

REPORT INFORMATION
  Report Type: Other
  Country: GB (occurrence: GB)
  Receive Date: 20240914
  Receipt Date: 20250506
  Transmission Date: 20250716
  Serious: Yes (Other)
  Sender: ZYDUS PHARM
  Company Number: None

PATIENT

DRUGS (735)
  1. MESALAMINE [Suspect]
     Active Substance: MESALAMINE
     Indication: Colitis ulcerative
     Route: 065
  2. MESALAMINE [Suspect]
     Active Substance: MESALAMINE
     Route: 048
  3. MESALAMINE [Suspect]
     Active Substance: MESALAMINE
     Route: 048
  4. MESALAMINE [Suspect]
     Active Substance: MESALAMINE
     Route: 065
  5. MESALAMINE [Suspect]
     Active Substance: MESALAMINE
     Route: 065
  6. MESALAMINE [Suspect]
     Active Substance: MESALAMINE
     Route: 048
  7. MESALAMINE [Suspect]
     Active Substance: MESALAMINE
     Route: 065
  8. MESALAMINE [Suspect]
     Active Substance: MESALAMINE
     Route: 065
  9. MESALAMINE [Suspect]
     Active Substance: MESALAMINE
     Route: 065
  10. MESALAMINE [Suspect]
     Active Substance: MESALAMINE
     Route: 065
  11. MESALAMINE [Suspect]
     Active Substance: MESALAMINE
     Route: 065
  12. MESALAMINE [Suspect]
     Active Substance: MESALAMINE
     Route: 065
  13. MESALAMINE [Suspect]
     Active Substance: MESALAMINE
     Route: 065
  14. MESALAMINE [Suspect]
     Active Substance: MESALAMINE
     Route: 048
  15. MESALAMINE [Suspect]
     Active Substance: MESALAMINE
     Route: 065
  16. MESALAMINE [Suspect]
     Active Substance: MESALAMINE
     Route: 048
  17. MESALAMINE [Suspect]
     Active Substance: MESALAMINE
     Route: 065
  18. MESALAMINE [Suspect]
     Active Substance: MESALAMINE
     Route: 048
  19. MESALAMINE [Suspect]
     Active Substance: MESALAMINE
     Route: 048
  20. MESALAMINE [Suspect]
     Active Substance: MESALAMINE
     Route: 048
  21. MESALAMINE [Suspect]
     Active Substance: MESALAMINE
     Route: 048
  22. MESALAMINE [Suspect]
     Active Substance: MESALAMINE
     Route: 065
  23. MESALAMINE [Suspect]
     Active Substance: MESALAMINE
     Route: 065
  24. MESALAMINE [Suspect]
     Active Substance: MESALAMINE
     Route: 065
  25. MESALAMINE [Suspect]
     Active Substance: MESALAMINE
     Route: 065
  26. MESALAMINE [Suspect]
     Active Substance: MESALAMINE
     Route: 065
  27. MESALAMINE [Suspect]
     Active Substance: MESALAMINE
     Route: 065
  28. MESALAMINE [Suspect]
     Active Substance: MESALAMINE
     Route: 065
  29. MESALAMINE [Suspect]
     Active Substance: MESALAMINE
     Route: 048
  30. MESALAMINE [Suspect]
     Active Substance: MESALAMINE
     Route: 065
  31. MESALAMINE [Suspect]
     Active Substance: MESALAMINE
     Route: 065
  32. MESALAMINE [Suspect]
     Active Substance: MESALAMINE
     Route: 048
  33. MESALAMINE [Suspect]
     Active Substance: MESALAMINE
     Route: 065
  34. MESALAMINE [Suspect]
     Active Substance: MESALAMINE
     Route: 065
     Dates: start: 20161001
  35. MESALAMINE [Suspect]
     Active Substance: MESALAMINE
     Route: 065
     Dates: start: 20161001
  36. MESALAMINE [Suspect]
     Active Substance: MESALAMINE
     Route: 065
     Dates: start: 2017, end: 201709
  37. MESALAMINE [Suspect]
     Active Substance: MESALAMINE
     Route: 065
     Dates: start: 201610, end: 201709
  38. MESALAMINE [Suspect]
     Active Substance: MESALAMINE
     Route: 065
     Dates: start: 20170101, end: 20170901
  39. MESALAMINE [Suspect]
     Active Substance: MESALAMINE
     Route: 065
     Dates: start: 20170101, end: 20170901
  40. MESALAMINE [Suspect]
     Active Substance: MESALAMINE
     Route: 065
     Dates: start: 20160101, end: 20161001
  41. MESALAMINE [Suspect]
     Active Substance: MESALAMINE
     Route: 065
     Dates: start: 20160101, end: 20161001
  42. MESALAMINE [Suspect]
     Active Substance: MESALAMINE
     Route: 065
     Dates: start: 20161001
  43. MESALAMINE [Suspect]
     Active Substance: MESALAMINE
     Route: 065
     Dates: start: 201709
  44. MESALAMINE [Suspect]
     Active Substance: MESALAMINE
     Route: 065
     Dates: start: 201709, end: 201709
  45. MESALAMINE [Suspect]
     Active Substance: MESALAMINE
     Route: 065
     Dates: start: 20161001
  46. MESALAMINE [Suspect]
     Active Substance: MESALAMINE
     Route: 065
  47. MESALAMINE [Suspect]
     Active Substance: MESALAMINE
     Route: 065
  48. MESALAMINE [Suspect]
     Active Substance: MESALAMINE
     Route: 065
  49. MESALAMINE [Suspect]
     Active Substance: MESALAMINE
     Route: 065
  50. MESALAMINE [Suspect]
     Active Substance: MESALAMINE
     Route: 065
  51. ACETAMINOPHEN [Suspect]
     Active Substance: ACETAMINOPHEN
     Indication: Ill-defined disorder
     Route: 065
  52. ACETAMINOPHEN [Suspect]
     Active Substance: ACETAMINOPHEN
     Route: 065
  53. ACETAMINOPHEN [Suspect]
     Active Substance: ACETAMINOPHEN
     Route: 065
  54. ADALIMUMAB [Suspect]
     Active Substance: ADALIMUMAB
     Indication: Crohn^s disease
     Route: 065
     Dates: start: 201707
  55. ADALIMUMAB [Suspect]
     Active Substance: ADALIMUMAB
     Indication: Colitis ulcerative
     Route: 065
  56. ADALIMUMAB [Suspect]
     Active Substance: ADALIMUMAB
     Indication: Deep vein thrombosis
     Route: 058
  57. ADALIMUMAB [Suspect]
     Active Substance: ADALIMUMAB
     Route: 048
     Dates: start: 201707
  58. ADALIMUMAB [Suspect]
     Active Substance: ADALIMUMAB
     Route: 058
  59. ADALIMUMAB [Suspect]
     Active Substance: ADALIMUMAB
  60. ADALIMUMAB [Suspect]
     Active Substance: ADALIMUMAB
  61. ADALIMUMAB [Suspect]
     Active Substance: ADALIMUMAB
     Route: 058
  62. ADALIMUMAB [Suspect]
     Active Substance: ADALIMUMAB
  63. ADALIMUMAB [Suspect]
     Active Substance: ADALIMUMAB
     Route: 058
  64. ALBENDAZOLE [Suspect]
     Active Substance: ALBENDAZOLE
     Indication: Deep vein thrombosis
     Route: 042
     Dates: start: 2021
  65. ALBENDAZOLE [Suspect]
     Active Substance: ALBENDAZOLE
     Indication: Colitis ulcerative
     Route: 042
     Dates: start: 2017, end: 2017
  66. ALBENDAZOLE [Suspect]
     Active Substance: ALBENDAZOLE
     Route: 048
  67. ALBENDAZOLE [Suspect]
     Active Substance: ALBENDAZOLE
     Route: 042
  68. ALBENDAZOLE [Suspect]
     Active Substance: ALBENDAZOLE
     Route: 048
  69. ASACOL [Suspect]
     Active Substance: MESALAMINE
     Indication: Colitis ulcerative
     Route: 065
  70. ASACOL [Suspect]
     Active Substance: MESALAMINE
     Route: 065
  71. ASACOL [Suspect]
     Active Substance: MESALAMINE
     Route: 065
     Dates: start: 20161001
  72. ASACOL [Suspect]
     Active Substance: MESALAMINE
     Route: 065
     Dates: start: 20161001
  73. ASACOL [Suspect]
     Active Substance: MESALAMINE
     Route: 065
     Dates: start: 20161001
  74. ASACOL [Suspect]
     Active Substance: MESALAMINE
     Route: 065
  75. ASACOL [Suspect]
     Active Substance: MESALAMINE
     Route: 065
  76. ASACOL [Suspect]
     Active Substance: MESALAMINE
     Route: 065
  77. ASACOL [Suspect]
     Active Substance: MESALAMINE
     Route: 065
  78. ASACOL [Suspect]
     Active Substance: MESALAMINE
     Route: 065
  79. ASACOL [Suspect]
     Active Substance: MESALAMINE
     Route: 065
     Dates: start: 20161001
  80. ASACOL [Suspect]
     Active Substance: MESALAMINE
     Route: 065
  81. ASACOL [Suspect]
     Active Substance: MESALAMINE
     Route: 065
  82. ASACOL [Suspect]
     Active Substance: MESALAMINE
     Route: 065
     Dates: start: 20161001
  83. ASACOL [Suspect]
     Active Substance: MESALAMINE
     Route: 048
  84. ASACOL [Suspect]
     Active Substance: MESALAMINE
     Route: 065
  85. ASACOL [Suspect]
     Active Substance: MESALAMINE
     Route: 048
  86. ASACOL [Suspect]
     Active Substance: MESALAMINE
     Route: 048
  87. ASACOL [Suspect]
     Active Substance: MESALAMINE
  88. ASACOL [Suspect]
     Active Substance: MESALAMINE
  89. ASACOL [Suspect]
     Active Substance: MESALAMINE
  90. ASACOL [Suspect]
     Active Substance: MESALAMINE
     Dates: start: 20161001
  91. ASACOL [Suspect]
     Active Substance: MESALAMINE
     Dates: start: 20161001
  92. ASACOL [Suspect]
     Active Substance: MESALAMINE
  93. ASACOL [Suspect]
     Active Substance: MESALAMINE
     Route: 048
  94. ASACOL [Suspect]
     Active Substance: MESALAMINE
  95. ASPIRIN [Suspect]
     Active Substance: ASPIRIN
     Indication: Product used for unknown indication
     Route: 065
  96. BUDESONIDE [Suspect]
     Active Substance: BUDESONIDE
     Indication: Colitis ulcerative
     Route: 065
  97. BUDESONIDE [Suspect]
     Active Substance: BUDESONIDE
     Route: 048
  98. BUDESONIDE [Suspect]
     Active Substance: BUDESONIDE
     Route: 065
  99. BUDESONIDE [Suspect]
     Active Substance: BUDESONIDE
     Route: 048
  100. BUDESONIDE [Suspect]
     Active Substance: BUDESONIDE
     Route: 048
     Dates: start: 201707
  101. BUDESONIDE [Suspect]
     Active Substance: BUDESONIDE
     Route: 065
  102. BUDESONIDE [Suspect]
     Active Substance: BUDESONIDE
     Route: 048
     Dates: start: 201707
  103. BUDESONIDE [Suspect]
     Active Substance: BUDESONIDE
     Route: 065
  104. BUDESONIDE [Suspect]
     Active Substance: BUDESONIDE
     Route: 048
     Dates: start: 201707
  105. BUDESONIDE [Suspect]
     Active Substance: BUDESONIDE
     Route: 048
  106. BUDESONIDE [Suspect]
     Active Substance: BUDESONIDE
     Route: 048
  107. BUDESONIDE [Suspect]
     Active Substance: BUDESONIDE
     Route: 048
  108. BUDESONIDE [Suspect]
     Active Substance: BUDESONIDE
     Route: 065
  109. BUDESONIDE [Suspect]
     Active Substance: BUDESONIDE
     Route: 048
  110. BUDESONIDE [Suspect]
     Active Substance: BUDESONIDE
  111. BUDESONIDE [Suspect]
     Active Substance: BUDESONIDE
  112. BUDESONIDE [Suspect]
     Active Substance: BUDESONIDE
  113. BUDESONIDE [Suspect]
     Active Substance: BUDESONIDE
  114. BUDESONIDE [Suspect]
     Active Substance: BUDESONIDE
     Route: 048
     Dates: start: 201707
  115. BUDESONIDE [Suspect]
     Active Substance: BUDESONIDE
     Route: 048
     Dates: start: 200707
  116. BUDESONIDE [Suspect]
     Active Substance: BUDESONIDE
  117. BUDESONIDE [Suspect]
     Active Substance: BUDESONIDE
  118. BUDESONIDE [Suspect]
     Active Substance: BUDESONIDE
  119. CANDESARTAN [Suspect]
     Active Substance: CANDESARTAN
     Indication: Product used for unknown indication
     Route: 048
     Dates: start: 20230412
  120. CANDESARTAN [Suspect]
     Active Substance: CANDESARTAN
     Indication: Colitis ulcerative
     Route: 048
     Dates: start: 20230412
  121. CANDESARTAN [Suspect]
     Active Substance: CANDESARTAN
     Route: 048
     Dates: start: 20230412
  122. CANDESARTAN [Suspect]
     Active Substance: CANDESARTAN
     Route: 048
     Dates: start: 20230412
  123. AZD-1222 [Suspect]
     Active Substance: AZD-1222
     Indication: COVID-19 immunisation
     Route: 065
     Dates: start: 20190319
  124. AZD-1222 [Suspect]
     Active Substance: AZD-1222
     Indication: Adverse drug reaction
     Route: 065
  125. AZD-1222 [Suspect]
     Active Substance: AZD-1222
     Route: 065
     Dates: start: 2019, end: 2019
  126. AZD-1222 [Suspect]
     Active Substance: AZD-1222
     Route: 065
     Dates: start: 20210713, end: 20210713
  127. AZD-1222 [Suspect]
     Active Substance: AZD-1222
     Route: 065
     Dates: start: 20210130, end: 20210130
  128. AZD-1222 [Suspect]
     Active Substance: AZD-1222
     Route: 065
     Dates: start: 20210508, end: 20210508
  129. AZD-1222 [Suspect]
     Active Substance: AZD-1222
     Route: 065
     Dates: start: 20210204, end: 20210204
  130. AZD-1222 [Suspect]
     Active Substance: AZD-1222
     Route: 065
     Dates: start: 20210521, end: 20210521
  131. AZD-1222 [Suspect]
     Active Substance: AZD-1222
     Route: 065
     Dates: start: 20210318, end: 20210318
  132. AZD-1222 [Suspect]
     Active Substance: AZD-1222
     Route: 065
     Dates: start: 20210416, end: 20210416
  133. AZD-1222 [Suspect]
     Active Substance: AZD-1222
     Route: 065
     Dates: start: 20210215, end: 20210215
  134. AZD-1222 [Suspect]
     Active Substance: AZD-1222
     Route: 065
     Dates: start: 20210319, end: 20210319
  135. AZD-1222 [Suspect]
     Active Substance: AZD-1222
     Route: 065
     Dates: start: 20210204, end: 20210204
  136. AZD-1222 [Suspect]
     Active Substance: AZD-1222
     Route: 065
     Dates: start: 20210423, end: 20210423
  137. AZD-1222 [Suspect]
     Active Substance: AZD-1222
  138. AZD-1222 [Suspect]
     Active Substance: AZD-1222
     Dates: start: 20210204, end: 20210204
  139. CHOLECALCIFEROL [Suspect]
     Active Substance: CHOLECALCIFEROL
     Indication: Product used for unknown indication
     Route: 065
  140. CHOLECALCIFEROL [Suspect]
     Active Substance: CHOLECALCIFEROL
  141. CHOLECALCIFEROL [Suspect]
     Active Substance: CHOLECALCIFEROL
  142. CHOLECALCIFEROL [Suspect]
     Active Substance: CHOLECALCIFEROL
  143. COMIRNATY (TOZINAMERAN) [Suspect]
     Active Substance: TOZINAMERAN
     Indication: Product used for unknown indication
     Route: 065
  144. COMIRNATY (TOZINAMERAN) [Suspect]
     Active Substance: TOZINAMERAN
  145. COMIRNATY (TOZINAMERAN) [Suspect]
     Active Substance: TOZINAMERAN
  146. COMIRNATY (TOZINAMERAN) [Suspect]
     Active Substance: TOZINAMERAN
     Route: 048
  147. COMIRNATY (TOZINAMERAN) [Suspect]
     Active Substance: TOZINAMERAN
     Route: 048
  148. COMIRNATY (TOZINAMERAN) [Suspect]
     Active Substance: TOZINAMERAN
     Route: 048
  149. COMIRNATY (TOZINAMERAN) [Suspect]
     Active Substance: TOZINAMERAN
     Route: 048
  150. CORTIFOAM [Suspect]
     Active Substance: HYDROCORTISONE ACETATE
     Indication: Deep vein thrombosis
     Route: 048
  151. CORTIFOAM [Suspect]
     Active Substance: HYDROCORTISONE ACETATE
     Indication: Colitis ulcerative
     Route: 065
  152. CORTIFOAM [Suspect]
     Active Substance: HYDROCORTISONE ACETATE
     Route: 048
     Dates: start: 201707
  153. CORTIFOAM [Suspect]
     Active Substance: HYDROCORTISONE ACETATE
     Route: 048
  154. CORTIFOAM [Suspect]
     Active Substance: HYDROCORTISONE ACETATE
     Route: 048
     Dates: start: 201707
  155. CORTIFOAM [Suspect]
     Active Substance: HYDROCORTISONE ACETATE
     Route: 065
  156. CORTIFOAM [Suspect]
     Active Substance: HYDROCORTISONE ACETATE
     Route: 065
  157. CORTIFOAM [Suspect]
     Active Substance: HYDROCORTISONE ACETATE
     Route: 048
  158. CORTIFOAM [Suspect]
     Active Substance: HYDROCORTISONE ACETATE
  159. CORTIFOAM [Suspect]
     Active Substance: HYDROCORTISONE ACETATE
     Route: 048
  160. CORTIFOAM [Suspect]
     Active Substance: HYDROCORTISONE ACETATE
  161. CORTIFOAM [Suspect]
     Active Substance: HYDROCORTISONE ACETATE
  162. CORTIFOAM [Suspect]
     Active Substance: HYDROCORTISONE ACETATE
  163. CORTIFOAM [Suspect]
     Active Substance: HYDROCORTISONE ACETATE
     Route: 048
  164. CORTIFOAM [Suspect]
     Active Substance: HYDROCORTISONE ACETATE
     Route: 048
     Dates: start: 201707
  165. CORTIFOAM [Suspect]
     Active Substance: HYDROCORTISONE ACETATE
     Route: 048
  166. CORTIFOAM [Suspect]
     Active Substance: HYDROCORTISONE ACETATE
  167. CORTIFOAM [Suspect]
     Active Substance: HYDROCORTISONE ACETATE
  168. CORTIFOAM [Suspect]
     Active Substance: HYDROCORTISONE ACETATE
  169. BUDESONIDE [Suspect]
     Active Substance: BUDESONIDE
     Indication: Colitis ulcerative
     Route: 048
  170. BUDESONIDE [Suspect]
     Active Substance: BUDESONIDE
     Route: 065
  171. BUDESONIDE [Suspect]
     Active Substance: BUDESONIDE
     Route: 048
  172. BUDESONIDE [Suspect]
     Active Substance: BUDESONIDE
     Route: 065
  173. BUDESONIDE [Suspect]
     Active Substance: BUDESONIDE
     Route: 065
  174. BUDESONIDE [Suspect]
     Active Substance: BUDESONIDE
     Route: 048
     Dates: start: 201707
  175. BUDESONIDE [Suspect]
     Active Substance: BUDESONIDE
     Route: 065
  176. BUDESONIDE [Suspect]
     Active Substance: BUDESONIDE
     Route: 048
  177. BUDESONIDE [Suspect]
     Active Substance: BUDESONIDE
     Route: 065
  178. BUDESONIDE [Suspect]
     Active Substance: BUDESONIDE
     Route: 048
  179. BUDESONIDE [Suspect]
     Active Substance: BUDESONIDE
     Route: 048
  180. CORTISONE (HYDROCORTISONE) [Suspect]
     Active Substance: HYDROCORTISONE
     Indication: Crohn^s disease
     Route: 042
  181. CORTISONE (HYDROCORTISONE) [Suspect]
     Active Substance: HYDROCORTISONE
     Indication: Colitis ulcerative
     Route: 065
  182. CORTISONE (HYDROCORTISONE) [Suspect]
     Active Substance: HYDROCORTISONE
     Route: 065
  183. CORTISONE (HYDROCORTISONE) [Suspect]
     Active Substance: HYDROCORTISONE
     Route: 048
  184. CORTISONE (HYDROCORTISONE) [Suspect]
     Active Substance: HYDROCORTISONE
     Route: 048
  185. CORTISONE (HYDROCORTISONE) [Suspect]
     Active Substance: HYDROCORTISONE
     Route: 065
  186. CORTISONE (HYDROCORTISONE) [Suspect]
     Active Substance: HYDROCORTISONE
     Route: 048
  187. CORTISONE (HYDROCORTISONE) [Suspect]
     Active Substance: HYDROCORTISONE
     Route: 048
  188. CORTISONE (HYDROCORTISONE) [Suspect]
     Active Substance: HYDROCORTISONE
     Route: 065
  189. CORTISONE (HYDROCORTISONE) [Suspect]
     Active Substance: HYDROCORTISONE
     Route: 048
  190. CORTISONE (HYDROCORTISONE) [Suspect]
     Active Substance: HYDROCORTISONE
     Route: 048
  191. CORTISONE (HYDROCORTISONE) [Suspect]
     Active Substance: HYDROCORTISONE
     Route: 065
  192. DAPAGLIFLOZIN [Suspect]
     Active Substance: DAPAGLIFLOZIN
     Indication: Ill-defined disorder
     Route: 065
  193. DAPAGLIFLOZIN [Suspect]
     Active Substance: DAPAGLIFLOZIN
     Indication: Cardiac failure chronic
  194. LISDEXAMFETAMINE DIMESYLATE [Suspect]
     Active Substance: LISDEXAMFETAMINE DIMESYLATE
     Indication: Product used for unknown indication
     Route: 065
  195. LISDEXAMFETAMINE DIMESYLATE [Suspect]
     Active Substance: LISDEXAMFETAMINE DIMESYLATE
  196. LISDEXAMFETAMINE DIMESYLATE [Suspect]
     Active Substance: LISDEXAMFETAMINE DIMESYLATE
  197. LISDEXAMFETAMINE DIMESYLATE [Suspect]
     Active Substance: LISDEXAMFETAMINE DIMESYLATE
  198. LISDEXAMFETAMINE DIMESYLATE [Suspect]
     Active Substance: LISDEXAMFETAMINE DIMESYLATE
  199. LISDEXAMFETAMINE DIMESYLATE [Suspect]
     Active Substance: LISDEXAMFETAMINE DIMESYLATE
  200. LISDEXAMFETAMINE DIMESYLATE [Suspect]
     Active Substance: LISDEXAMFETAMINE DIMESYLATE
  201. ENTYVIO [Suspect]
     Active Substance: VEDOLIZUMAB
     Indication: Colitis ulcerative
     Route: 042
  202. ENTYVIO [Suspect]
     Active Substance: VEDOLIZUMAB
     Indication: Deep vein thrombosis
     Route: 048
  203. ENTYVIO [Suspect]
     Active Substance: VEDOLIZUMAB
     Route: 065
  204. ENTYVIO [Suspect]
     Active Substance: VEDOLIZUMAB
     Route: 048
  205. ENTYVIO [Suspect]
     Active Substance: VEDOLIZUMAB
     Route: 048
  206. ENTYVIO [Suspect]
     Active Substance: VEDOLIZUMAB
     Route: 065
  207. ENTYVIO [Suspect]
     Active Substance: VEDOLIZUMAB
     Route: 065
  208. ENTYVIO [Suspect]
     Active Substance: VEDOLIZUMAB
     Route: 065
  209. ENTYVIO [Suspect]
     Active Substance: VEDOLIZUMAB
     Route: 042
  210. ENTYVIO [Suspect]
     Active Substance: VEDOLIZUMAB
     Route: 042
     Dates: start: 2017, end: 2017
  211. ENTYVIO [Suspect]
     Active Substance: VEDOLIZUMAB
     Route: 042
  212. ENTYVIO [Suspect]
     Active Substance: VEDOLIZUMAB
  213. ENTYVIO [Suspect]
     Active Substance: VEDOLIZUMAB
     Route: 048
  214. ENTYVIO [Suspect]
     Active Substance: VEDOLIZUMAB
  215. ENTYVIO [Suspect]
     Active Substance: VEDOLIZUMAB
     Route: 048
  216. ENTYVIO [Suspect]
     Active Substance: VEDOLIZUMAB
     Route: 042
  217. EPINEPHRINE HYDROCHLORIDE [Suspect]
     Active Substance: EPINEPHRINE HYDROCHLORIDE
     Indication: Product used for unknown indication
     Route: 065
  218. ESCITALOPRAM [Suspect]
     Active Substance: ESCITALOPRAM OXALATE
     Indication: Product used for unknown indication
     Route: 065
  219. ESCITALOPRAM [Suspect]
     Active Substance: ESCITALOPRAM OXALATE
     Route: 065
  220. ESCITALOPRAM [Suspect]
     Active Substance: ESCITALOPRAM OXALATE
  221. ESCITALOPRAM [Suspect]
     Active Substance: ESCITALOPRAM OXALATE
  222. ESOMEPRAZOLE [Suspect]
     Active Substance: ESOMEPRAZOLE
     Indication: Gastritis
     Route: 065
  223. ESOMEPRAZOLE [Suspect]
     Active Substance: ESOMEPRAZOLE
  224. ESOMEPRAZOLE [Suspect]
     Active Substance: ESOMEPRAZOLE
  225. ESOMEPRAZOLE [Suspect]
     Active Substance: ESOMEPRAZOLE
  226. ESOMEPRAZOLE [Suspect]
     Active Substance: ESOMEPRAZOLE
  227. ESOMEPRAZOLE [Suspect]
     Active Substance: ESOMEPRAZOLE
  228. FELODIPINE [Suspect]
     Active Substance: FELODIPINE
     Indication: Hypertension
     Route: 048
  229. FELODIPINE [Suspect]
     Active Substance: FELODIPINE
     Route: 048
  230. FELODIPINE [Suspect]
     Active Substance: FELODIPINE
     Route: 048
  231. FUROSEMIDE [Suspect]
     Active Substance: FUROSEMIDE
     Indication: Product used for unknown indication
     Route: 065
  232. FUROSEMIDE [Suspect]
     Active Substance: FUROSEMIDE
     Route: 065
  233. FUROSEMIDE [Suspect]
     Active Substance: FUROSEMIDE
  234. FUROSEMIDE [Suspect]
     Active Substance: FUROSEMIDE
  235. GABAPENTIN [Suspect]
     Active Substance: GABAPENTIN
     Indication: Product used for unknown indication
     Route: 065
  236. GABAPENTIN [Suspect]
     Active Substance: GABAPENTIN
     Route: 065
  237. GABAPENTIN [Suspect]
     Active Substance: GABAPENTIN
  238. GABAPENTIN [Suspect]
     Active Substance: GABAPENTIN
  239. GABAPENTIN [Suspect]
     Active Substance: GABAPENTIN
  240. GABAPENTIN [Suspect]
     Active Substance: GABAPENTIN
  241. HYDROCORTISONE [Suspect]
     Active Substance: HYDROCORTISONE
     Indication: Colitis ulcerative
     Route: 048
  242. HYDROCORTISONE [Suspect]
     Active Substance: HYDROCORTISONE
     Route: 065
  243. HYDROCORTISONE [Suspect]
     Active Substance: HYDROCORTISONE
     Route: 048
     Dates: start: 201807
  244. HYDROCORTISONE [Suspect]
     Active Substance: HYDROCORTISONE
     Route: 065
  245. HYDROCORTISONE [Suspect]
     Active Substance: HYDROCORTISONE
     Route: 065
  246. HYDROCORTISONE [Suspect]
     Active Substance: HYDROCORTISONE
     Route: 048
     Dates: start: 201807
  247. HYDROCORTISONE [Suspect]
     Active Substance: HYDROCORTISONE
     Route: 065
  248. HYDROCORTISONE [Suspect]
     Active Substance: HYDROCORTISONE
     Route: 048
  249. HYDROCORTISONE [Suspect]
     Active Substance: HYDROCORTISONE
     Route: 048
  250. HYDROCORTISONE [Suspect]
     Active Substance: HYDROCORTISONE
     Route: 048
  251. HYDROCORTISONE [Suspect]
     Active Substance: HYDROCORTISONE
     Route: 048
  252. HYDROCORTISONE [Suspect]
     Active Substance: HYDROCORTISONE
     Route: 048
  253. HYDROCORTISONE [Suspect]
     Active Substance: HYDROCORTISONE
  254. HYDROCORTISONE [Suspect]
     Active Substance: HYDROCORTISONE
     Route: 048
     Dates: start: 201807
  255. HYDROCORTISONE [Suspect]
     Active Substance: HYDROCORTISONE
     Route: 048
  256. HYDROCORTISONE [Suspect]
     Active Substance: HYDROCORTISONE
  257. HYDROCORTISONE [Suspect]
     Active Substance: HYDROCORTISONE
  258. HYDROCORTISONE [Suspect]
     Active Substance: HYDROCORTISONE
     Route: 048
  259. HYDROCORTISONE [Suspect]
     Active Substance: HYDROCORTISONE
     Route: 048
  260. HYDROCORTISONE [Suspect]
     Active Substance: HYDROCORTISONE
  261. HYDROCORTISONE [Suspect]
     Active Substance: HYDROCORTISONE
     Route: 048
  262. HYDROCORTISONE [Suspect]
     Active Substance: HYDROCORTISONE
     Route: 048
  263. HYDROCORTISONE [Suspect]
     Active Substance: HYDROCORTISONE
     Route: 048
  264. HYDROCORTISONE [Suspect]
     Active Substance: HYDROCORTISONE
     Route: 048
  265. HYDROCORTISONE [Suspect]
     Active Substance: HYDROCORTISONE
     Route: 048
  266. HYDROCORTISONE [Suspect]
     Active Substance: HYDROCORTISONE
     Route: 048
  267. HYDROCORTISONE [Suspect]
     Active Substance: HYDROCORTISONE
  268. HYDROCORTISONE [Suspect]
     Active Substance: HYDROCORTISONE
  269. HYDROCORTISONE [Suspect]
     Active Substance: HYDROCORTISONE
  270. HYDROCORTISONE [Suspect]
     Active Substance: HYDROCORTISONE
  271. HYDROCORTISONE [Suspect]
     Active Substance: HYDROCORTISONE
     Route: 048
     Dates: start: 201807
  272. HYDROCORTISONE [Suspect]
     Active Substance: HYDROCORTISONE
     Route: 048
     Dates: start: 201807
  273. HYDROCORTISONE [Suspect]
     Active Substance: HYDROCORTISONE
     Route: 048
     Dates: start: 201807
  274. HUMIRA [Suspect]
     Active Substance: ADALIMUMAB
     Indication: Deep vein thrombosis
     Route: 065
  275. HUMIRA [Suspect]
     Active Substance: ADALIMUMAB
     Indication: Crohn^s disease
     Route: 065
  276. HUMIRA [Suspect]
     Active Substance: ADALIMUMAB
     Indication: Colitis ulcerative
     Route: 065
  277. HUMIRA [Suspect]
     Active Substance: ADALIMUMAB
     Route: 065
  278. HUMIRA [Suspect]
     Active Substance: ADALIMUMAB
     Route: 048
     Dates: start: 201707
  279. HUMIRA [Suspect]
     Active Substance: ADALIMUMAB
     Route: 058
  280. HUMIRA [Suspect]
     Active Substance: ADALIMUMAB
  281. HUMIRA [Suspect]
     Active Substance: ADALIMUMAB
  282. HUMIRA [Suspect]
     Active Substance: ADALIMUMAB
  283. HUMIRA [Suspect]
     Active Substance: ADALIMUMAB
     Route: 058
  284. INFLECTRA [Suspect]
     Active Substance: INFLIXIMAB-DYYB
     Indication: Crohn^s disease
     Route: 065
  285. INFLECTRA [Suspect]
     Active Substance: INFLIXIMAB-DYYB
     Indication: Colitis ulcerative
     Route: 048
  286. INFLECTRA [Suspect]
     Active Substance: INFLIXIMAB-DYYB
     Route: 042
  287. INFLECTRA [Suspect]
     Active Substance: INFLIXIMAB-DYYB
     Route: 065
  288. INFLECTRA [Suspect]
     Active Substance: INFLIXIMAB-DYYB
     Route: 048
  289. INFLECTRA [Suspect]
     Active Substance: INFLIXIMAB-DYYB
     Route: 042
  290. INFLECTRA [Suspect]
     Active Substance: INFLIXIMAB-DYYB
     Route: 065
  291. INFLECTRA [Suspect]
     Active Substance: INFLIXIMAB-DYYB
     Route: 065
  292. INFLECTRA [Suspect]
     Active Substance: INFLIXIMAB-DYYB
     Route: 065
  293. INFLIXIMAB [Suspect]
     Active Substance: INFLIXIMAB
     Indication: Crohn^s disease
     Route: 042
     Dates: start: 201709
  294. INFLIXIMAB [Suspect]
     Active Substance: INFLIXIMAB
     Indication: Colitis ulcerative
     Route: 042
  295. INFLIXIMAB [Suspect]
     Active Substance: INFLIXIMAB
     Route: 042
  296. INFLIXIMAB [Suspect]
     Active Substance: INFLIXIMAB
     Route: 042
  297. INFLIXIMAB [Suspect]
     Active Substance: INFLIXIMAB
     Route: 042
     Dates: start: 20170119
  298. INFLIXIMAB [Suspect]
     Active Substance: INFLIXIMAB
     Route: 065
  299. INFLIXIMAB [Suspect]
     Active Substance: INFLIXIMAB
     Route: 042
  300. INFLIXIMAB [Suspect]
     Active Substance: INFLIXIMAB
     Route: 042
  301. INFLIXIMAB [Suspect]
     Active Substance: INFLIXIMAB
     Route: 042
  302. INFLIXIMAB [Suspect]
     Active Substance: INFLIXIMAB
     Route: 042
     Dates: start: 20170101, end: 20170901
  303. INFLIXIMAB [Suspect]
     Active Substance: INFLIXIMAB
     Route: 042
  304. INFLIXIMAB [Suspect]
     Active Substance: INFLIXIMAB
     Route: 042
  305. INFLIXIMAB [Suspect]
     Active Substance: INFLIXIMAB
     Route: 042
     Dates: start: 20170101, end: 20170901
  306. INFLIXIMAB [Suspect]
     Active Substance: INFLIXIMAB
     Route: 042
  307. INFLIXIMAB [Suspect]
     Active Substance: INFLIXIMAB
     Route: 042
  308. INFLIXIMAB [Suspect]
     Active Substance: INFLIXIMAB
     Route: 042
  309. INFLIXIMAB [Suspect]
     Active Substance: INFLIXIMAB
     Route: 042
  310. INFLIXIMAB [Suspect]
     Active Substance: INFLIXIMAB
  311. INFLIXIMAB [Suspect]
     Active Substance: INFLIXIMAB
     Route: 042
  312. INFLIXIMAB [Suspect]
     Active Substance: INFLIXIMAB
  313. INFLIXIMAB [Suspect]
     Active Substance: INFLIXIMAB
     Route: 042
  314. INFLIXIMAB [Suspect]
     Active Substance: INFLIXIMAB
     Route: 042
  315. INFLIXIMAB [Suspect]
     Active Substance: INFLIXIMAB
  316. INFLIXIMAB [Suspect]
     Active Substance: INFLIXIMAB
     Route: 042
  317. INFLIXIMAB [Suspect]
     Active Substance: INFLIXIMAB
     Route: 042
  318. INFLIXIMAB [Suspect]
     Active Substance: INFLIXIMAB
  319. INFLIXIMAB [Suspect]
     Active Substance: INFLIXIMAB
     Route: 042
     Dates: start: 20171019
  320. INFLIXIMAB [Suspect]
     Active Substance: INFLIXIMAB
     Route: 042
  321. INFLIXIMAB [Suspect]
     Active Substance: INFLIXIMAB
     Route: 042
  322. INFLIXIMAB [Suspect]
     Active Substance: INFLIXIMAB
  323. INFLIXIMAB [Suspect]
     Active Substance: INFLIXIMAB
     Route: 042
  324. INFLIXIMAB [Suspect]
     Active Substance: INFLIXIMAB
     Route: 042
  325. INFLIXIMAB [Suspect]
     Active Substance: INFLIXIMAB
  326. INFLIXIMAB [Suspect]
     Active Substance: INFLIXIMAB
     Route: 042
  327. INFLIXIMAB [Suspect]
     Active Substance: INFLIXIMAB
     Route: 042
  328. INFLIXIMAB [Suspect]
     Active Substance: INFLIXIMAB
     Route: 042
  329. INFLIXIMAB [Suspect]
     Active Substance: INFLIXIMAB
     Route: 042
  330. INFLIXIMAB [Suspect]
     Active Substance: INFLIXIMAB
  331. INFLIXIMAB [Suspect]
     Active Substance: INFLIXIMAB
  332. INFLIXIMAB [Suspect]
     Active Substance: INFLIXIMAB
     Route: 042
  333. INFLIXIMAB [Suspect]
     Active Substance: INFLIXIMAB
     Route: 042
  334. INFLIXIMAB [Suspect]
     Active Substance: INFLIXIMAB
     Route: 042
  335. INFLIXIMAB [Suspect]
     Active Substance: INFLIXIMAB
     Route: 042
  336. INFLIXIMAB [Suspect]
     Active Substance: INFLIXIMAB
  337. INFLIXIMAB [Suspect]
     Active Substance: INFLIXIMAB
  338. INFLIXIMAB [Suspect]
     Active Substance: INFLIXIMAB
     Route: 042
  339. INFLIXIMAB [Suspect]
     Active Substance: INFLIXIMAB
     Route: 042
  340. INFLIXIMAB [Suspect]
     Active Substance: INFLIXIMAB
     Route: 042
  341. INFLIXIMAB [Suspect]
     Active Substance: INFLIXIMAB
     Route: 042
  342. INFLIXIMAB [Suspect]
     Active Substance: INFLIXIMAB
     Route: 042
  343. INFLIXIMAB [Suspect]
     Active Substance: INFLIXIMAB
     Route: 042
  344. INFLIXIMAB [Suspect]
     Active Substance: INFLIXIMAB
     Route: 042
  345. INFLIXIMAB [Suspect]
     Active Substance: INFLIXIMAB
     Route: 042
  346. INFLIXIMAB [Suspect]
     Active Substance: INFLIXIMAB
  347. INFLIXIMAB [Suspect]
     Active Substance: INFLIXIMAB
  348. INFLIXIMAB [Suspect]
     Active Substance: INFLIXIMAB
     Route: 042
  349. INFLIXIMAB [Suspect]
     Active Substance: INFLIXIMAB
     Route: 042
  350. INFLIXIMAB [Suspect]
     Active Substance: INFLIXIMAB
     Route: 042
  351. INFLIXIMAB [Suspect]
     Active Substance: INFLIXIMAB
     Route: 042
  352. INFLIXIMAB [Suspect]
     Active Substance: INFLIXIMAB
     Route: 042
  353. INFLIXIMAB [Suspect]
     Active Substance: INFLIXIMAB
     Route: 042
  354. INFLIXIMAB [Suspect]
     Active Substance: INFLIXIMAB
     Route: 042
  355. INFLIXIMAB [Suspect]
     Active Substance: INFLIXIMAB
     Route: 042
  356. INFLIXIMAB [Suspect]
     Active Substance: INFLIXIMAB
  357. INFLIXIMAB [Suspect]
     Active Substance: INFLIXIMAB
  358. INFLIXIMAB [Suspect]
     Active Substance: INFLIXIMAB
     Route: 042
     Dates: start: 20171019
  359. INFLIXIMAB [Suspect]
     Active Substance: INFLIXIMAB
     Route: 042
     Dates: start: 20171019
  360. INFLIXIMAB [Suspect]
     Active Substance: INFLIXIMAB
     Route: 042
     Dates: start: 20171019
  361. INFLIXIMAB [Suspect]
     Active Substance: INFLIXIMAB
     Route: 042
     Dates: start: 20170101, end: 20170901
  362. INFLIXIMAB [Suspect]
     Active Substance: INFLIXIMAB
     Route: 042
     Dates: start: 20170101, end: 20170901
  363. INFLIXIMAB [Suspect]
     Active Substance: INFLIXIMAB
     Route: 042
     Dates: start: 20170101, end: 20170901
  364. INFLIXIMAB [Suspect]
     Active Substance: INFLIXIMAB
     Route: 042
     Dates: start: 201709
  365. INFLIXIMAB [Suspect]
     Active Substance: INFLIXIMAB
     Route: 042
     Dates: start: 201709
  366. INFLIXIMAB [Suspect]
     Active Substance: INFLIXIMAB
     Route: 042
     Dates: start: 201709
  367. LEVOTHYROXINE SODIUM [Suspect]
     Active Substance: LEVOTHYROXINE SODIUM
     Indication: Product used for unknown indication
     Route: 065
  368. LEVOTHYROXINE SODIUM [Suspect]
     Active Substance: LEVOTHYROXINE SODIUM
     Route: 065
  369. MEBEVERINE HYDROCHLORIDE [Suspect]
     Active Substance: MEBEVERINE HYDROCHLORIDE
     Indication: Product used for unknown indication
     Route: 065
  370. MEBEVERINE HYDROCHLORIDE [Suspect]
     Active Substance: MEBEVERINE HYDROCHLORIDE
     Route: 065
  371. METFORMIN [Suspect]
     Active Substance: METFORMIN HYDROCHLORIDE
     Indication: Product used for unknown indication
     Route: 065
  372. METFORMIN [Suspect]
     Active Substance: METFORMIN HYDROCHLORIDE
     Route: 065
  373. METFORMIN [Suspect]
     Active Substance: METFORMIN HYDROCHLORIDE
  374. METFORMIN [Suspect]
     Active Substance: METFORMIN HYDROCHLORIDE
  375. METFORMIN [Suspect]
     Active Substance: METFORMIN HYDROCHLORIDE
  376. MESALAMINE [Suspect]
     Active Substance: MESALAMINE
     Indication: Colitis ulcerative
     Route: 048
     Dates: start: 20160101, end: 20161001
  377. MESALAMINE [Suspect]
     Active Substance: MESALAMINE
     Route: 048
     Dates: start: 20160101, end: 20161001
  378. MESALAMINE [Suspect]
     Active Substance: MESALAMINE
     Route: 065
     Dates: start: 201601, end: 201610
  379. MESALAMINE [Suspect]
     Active Substance: MESALAMINE
     Route: 065
  380. MESALAMINE [Suspect]
     Active Substance: MESALAMINE
     Route: 065
     Dates: start: 201601, end: 201610
  381. MESALAMINE [Suspect]
     Active Substance: MESALAMINE
     Route: 048
     Dates: start: 20160101, end: 20161001
  382. MESALAMINE [Suspect]
     Active Substance: MESALAMINE
     Route: 048
     Dates: start: 20160101, end: 20161001
  383. MESALAMINE [Suspect]
     Active Substance: MESALAMINE
     Route: 048
     Dates: start: 20160101, end: 201610
  384. MESALAMINE [Suspect]
     Active Substance: MESALAMINE
     Route: 048
     Dates: start: 20160101, end: 201610
  385. MESALAMINE [Suspect]
     Active Substance: MESALAMINE
     Route: 048
     Dates: start: 20160101, end: 201610
  386. MESALAMINE [Suspect]
     Active Substance: MESALAMINE
     Route: 048
     Dates: start: 20160101, end: 201610
  387. MESALAMINE [Suspect]
     Active Substance: MESALAMINE
     Dates: start: 201601, end: 201610
  388. MESALAMINE [Suspect]
     Active Substance: MESALAMINE
  389. MESALAMINE [Suspect]
     Active Substance: MESALAMINE
  390. MESALAMINE [Suspect]
     Active Substance: MESALAMINE
  391. MESALAMINE [Suspect]
     Active Substance: MESALAMINE
     Route: 065
  392. MESALAMINE [Suspect]
     Active Substance: MESALAMINE
     Route: 065
  393. MESALAMINE [Suspect]
     Active Substance: MESALAMINE
     Route: 065
  394. MESALAMINE [Suspect]
     Active Substance: MESALAMINE
     Route: 065
  395. MESALAMINE [Suspect]
     Active Substance: MESALAMINE
     Route: 065
  396. MESALAMINE [Suspect]
     Active Substance: MESALAMINE
     Route: 065
  397. MESALAMINE [Suspect]
     Active Substance: MESALAMINE
     Route: 065
  398. MESALAMINE [Suspect]
     Active Substance: MESALAMINE
     Route: 065
  399. MESALAMINE [Suspect]
     Active Substance: MESALAMINE
     Route: 065
  400. MESALAMINE [Suspect]
     Active Substance: MESALAMINE
     Route: 065
  401. MESALAMINE [Suspect]
     Active Substance: MESALAMINE
  402. OMEPRAZOLE [Suspect]
     Active Substance: OMEPRAZOLE
     Indication: Gastritis
     Route: 065
  403. OMEPRAZOLE [Suspect]
     Active Substance: OMEPRAZOLE
     Route: 065
  404. OMEPRAZOLE [Suspect]
     Active Substance: OMEPRAZOLE
     Route: 065
  405. OMEPRAZOLE [Suspect]
     Active Substance: OMEPRAZOLE
  406. OMEPRAZOLE [Suspect]
     Active Substance: OMEPRAZOLE
  407. OXYCODONE [Suspect]
     Active Substance: OXYCODONE
     Indication: Product used for unknown indication
     Route: 065
  408. OXYCODONE [Suspect]
     Active Substance: OXYCODONE
     Route: 065
  409. PARA-AMINOSALICYLIC ACID [Suspect]
     Active Substance: AMINOSALICYLIC ACID
     Indication: Product used for unknown indication
     Route: 048
  410. PARA-AMINOSALICYLIC ACID [Suspect]
     Active Substance: AMINOSALICYLIC ACID
     Indication: Deep vein thrombosis
     Route: 048
  411. PARA-AMINOSALICYLIC ACID [Suspect]
     Active Substance: AMINOSALICYLIC ACID
     Indication: Colitis ulcerative
     Route: 048
  412. PARA-AMINOSALICYLIC ACID [Suspect]
     Active Substance: AMINOSALICYLIC ACID
     Route: 048
  413. PARA-AMINOSALICYLIC ACID [Suspect]
     Active Substance: AMINOSALICYLIC ACID
     Route: 048
  414. PARA-AMINOSALICYLIC ACID [Suspect]
     Active Substance: AMINOSALICYLIC ACID
     Route: 048
  415. PARA-AMINOSALICYLIC ACID [Suspect]
     Active Substance: AMINOSALICYLIC ACID
     Route: 048
  416. PARA-AMINOSALICYLIC ACID [Suspect]
     Active Substance: AMINOSALICYLIC ACID
     Route: 048
  417. PREDNISONE [Suspect]
     Active Substance: PREDNISONE
     Indication: Colitis ulcerative
     Route: 065
     Dates: start: 2017
  418. PREDNISONE [Suspect]
     Active Substance: PREDNISONE
     Route: 065
  419. PREDNISONE [Suspect]
     Active Substance: PREDNISONE
     Route: 065
  420. PREDNISONE [Suspect]
     Active Substance: PREDNISONE
     Route: 065
  421. PREDNISONE [Suspect]
     Active Substance: PREDNISONE
     Route: 065
     Dates: start: 2009, end: 2009
  422. PREDNISONE [Suspect]
     Active Substance: PREDNISONE
     Route: 065
  423. PREDNISONE [Suspect]
     Active Substance: PREDNISONE
     Route: 065
  424. PREDNISONE [Suspect]
     Active Substance: PREDNISONE
  425. PREDNISONE [Suspect]
     Active Substance: PREDNISONE
  426. PREDNISONE [Suspect]
     Active Substance: PREDNISONE
  427. PREDNISONE [Suspect]
     Active Substance: PREDNISONE
  428. PREDNISONE [Suspect]
     Active Substance: PREDNISONE
  429. PREDNISONE [Suspect]
     Active Substance: PREDNISONE
  430. PREDNISONE [Suspect]
     Active Substance: PREDNISONE
  431. PREDNISONE [Suspect]
     Active Substance: PREDNISONE
  432. PREDNISONE [Suspect]
     Active Substance: PREDNISONE
  433. PREDNISONE [Suspect]
     Active Substance: PREDNISONE
  434. PREDNISONE [Suspect]
     Active Substance: PREDNISONE
  435. PREDNISONE [Suspect]
     Active Substance: PREDNISONE
  436. PREDNISONE [Suspect]
     Active Substance: PREDNISONE
  437. PREDNISONE [Suspect]
     Active Substance: PREDNISONE
  438. PREDNISONE [Suspect]
     Active Substance: PREDNISONE
     Dates: start: 2009, end: 2009
  439. PREDNISONE [Suspect]
     Active Substance: PREDNISONE
     Dates: start: 2017
  440. ROSUVASTATIN [Suspect]
     Active Substance: ROSUVASTATIN
     Indication: Blood cholesterol increased
     Route: 065
  441. ROSUVASTATIN [Suspect]
     Active Substance: ROSUVASTATIN
     Indication: Ill-defined disorder
     Route: 065
  442. ROSUVASTATIN [Suspect]
     Active Substance: ROSUVASTATIN
     Route: 065
  443. ROSUVASTATIN [Suspect]
     Active Substance: ROSUVASTATIN
  444. MESALAMINE [Suspect]
     Active Substance: MESALAMINE
     Indication: Product used for unknown indication
     Route: 065
  445. SULFASALAZINE [Suspect]
     Active Substance: SULFASALAZINE
     Indication: Arthritis
     Route: 065
  446. SULFASALAZINE [Suspect]
     Active Substance: SULFASALAZINE
     Indication: Colitis ulcerative
     Route: 065
  447. SULFASALAZINE [Suspect]
     Active Substance: SULFASALAZINE
     Route: 065
  448. SULFASALAZINE [Suspect]
     Active Substance: SULFASALAZINE
     Route: 065
  449. SULFASALAZINE [Suspect]
     Active Substance: SULFASALAZINE
     Route: 065
  450. SULFASALAZINE [Suspect]
     Active Substance: SULFASALAZINE
     Route: 048
  451. SULFASALAZINE [Suspect]
     Active Substance: SULFASALAZINE
     Route: 048
  452. SULFASALAZINE [Suspect]
     Active Substance: SULFASALAZINE
     Route: 065
  453. SULFASALAZINE [Suspect]
     Active Substance: SULFASALAZINE
     Route: 065
     Dates: start: 20160101, end: 20160101
  454. SULFASALAZINE [Suspect]
     Active Substance: SULFASALAZINE
     Route: 065
     Dates: start: 20090101, end: 20160101
  455. SULFASALAZINE [Suspect]
     Active Substance: SULFASALAZINE
     Route: 065
     Dates: start: 201709, end: 201709
  456. SULFASALAZINE [Suspect]
     Active Substance: SULFASALAZINE
     Route: 065
     Dates: start: 2009, end: 2016
  457. SULFASALAZINE [Suspect]
     Active Substance: SULFASALAZINE
     Route: 065
  458. SULFASALAZINE [Suspect]
     Active Substance: SULFASALAZINE
  459. SULFASALAZINE [Suspect]
     Active Substance: SULFASALAZINE
  460. SULFASALAZINE [Suspect]
     Active Substance: SULFASALAZINE
  461. SULFASALAZINE [Suspect]
     Active Substance: SULFASALAZINE
  462. SULFASALAZINE [Suspect]
     Active Substance: SULFASALAZINE
  463. SULFASALAZINE [Suspect]
     Active Substance: SULFASALAZINE
  464. SULFASALAZINE [Suspect]
     Active Substance: SULFASALAZINE
  465. SULFASALAZINE [Suspect]
     Active Substance: SULFASALAZINE
  466. SULFASALAZINE [Suspect]
     Active Substance: SULFASALAZINE
  467. SULFASALAZINE [Suspect]
     Active Substance: SULFASALAZINE
  468. SULFASALAZINE [Suspect]
     Active Substance: SULFASALAZINE
  469. SULFASALAZINE [Suspect]
     Active Substance: SULFASALAZINE
  470. SULFASALAZINE [Suspect]
     Active Substance: SULFASALAZINE
  471. SULFASALAZINE [Suspect]
     Active Substance: SULFASALAZINE
  472. SULFASALAZINE [Suspect]
     Active Substance: SULFASALAZINE
     Route: 048
  473. SULFASALAZINE [Suspect]
     Active Substance: SULFASALAZINE
     Route: 048
  474. SULFASALAZINE [Suspect]
     Active Substance: SULFASALAZINE
     Route: 048
  475. SULFASALAZINE [Suspect]
     Active Substance: SULFASALAZINE
  476. SULFASALAZINE [Suspect]
     Active Substance: SULFASALAZINE
  477. SULFASALAZINE [Suspect]
     Active Substance: SULFASALAZINE
     Route: 048
  478. SULFASALAZINE [Suspect]
     Active Substance: SULFASALAZINE
     Route: 048
  479. SULFASALAZINE [Suspect]
     Active Substance: SULFASALAZINE
     Route: 048
  480. SULFASALAZINE [Suspect]
     Active Substance: SULFASALAZINE
  481. SULFASALAZINE [Suspect]
     Active Substance: SULFASALAZINE
  482. SULFASALAZINE [Suspect]
     Active Substance: SULFASALAZINE
  483. SULFASALAZINE [Suspect]
     Active Substance: SULFASALAZINE
  484. SULFASALAZINE [Suspect]
     Active Substance: SULFASALAZINE
     Dates: start: 20160101, end: 20160101
  485. SULFASALAZINE [Suspect]
     Active Substance: SULFASALAZINE
     Dates: start: 2009, end: 2016
  486. SULFASALAZINE [Suspect]
     Active Substance: SULFASALAZINE
     Dates: start: 201709, end: 201709
  487. SULFASALAZINE [Suspect]
     Active Substance: SULFASALAZINE
     Dates: start: 20090101, end: 20160101
  488. TOZINAMERAN [Suspect]
     Active Substance: TOZINAMERAN
     Indication: Product used for unknown indication
     Route: 065
     Dates: start: 20220322, end: 20220322
  489. TOZINAMERAN [Suspect]
     Active Substance: TOZINAMERAN
     Dates: start: 20220322, end: 20220322
  490. TOZINAMERAN [Suspect]
     Active Substance: TOZINAMERAN
     Dates: start: 20220322, end: 20220322
  491. TOZINAMERAN [Suspect]
     Active Substance: TOZINAMERAN
     Dates: start: 20220322, end: 20220322
  492. VITAMIN D3 [Suspect]
     Active Substance: CHOLECALCIFEROL
     Indication: Product used for unknown indication
     Route: 048
  493. VITAMIN D3 [Suspect]
     Active Substance: CHOLECALCIFEROL
     Route: 048
  494. VITAMIN D3 [Suspect]
     Active Substance: CHOLECALCIFEROL
     Route: 048
  495. VITAMIN D3 [Suspect]
     Active Substance: CHOLECALCIFEROL
     Route: 048
  496. VYVANSE [Suspect]
     Active Substance: LISDEXAMFETAMINE DIMESYLATE
     Indication: Attention deficit hyperactivity disorder
     Route: 065
  497. VYVANSE [Suspect]
     Active Substance: LISDEXAMFETAMINE DIMESYLATE
  498. VYVANSE [Suspect]
     Active Substance: LISDEXAMFETAMINE DIMESYLATE
  499. VYVANSE [Suspect]
     Active Substance: LISDEXAMFETAMINE DIMESYLATE
     Route: 048
  500. VYVANSE [Suspect]
     Active Substance: LISDEXAMFETAMINE DIMESYLATE
     Route: 048
  501. VYVANSE [Suspect]
     Active Substance: LISDEXAMFETAMINE DIMESYLATE
     Route: 048
  502. VYVANSE [Suspect]
     Active Substance: LISDEXAMFETAMINE DIMESYLATE
     Route: 048
  503. WARFARIN [Suspect]
     Active Substance: WARFARIN
     Indication: Deep vein thrombosis
     Route: 065
     Dates: start: 2009
  504. WARFARIN [Suspect]
     Active Substance: WARFARIN
     Indication: Colitis ulcerative
     Route: 048
     Dates: start: 2009
  505. WARFARIN [Suspect]
     Active Substance: WARFARIN
     Route: 048
  506. WARFARIN [Suspect]
     Active Substance: WARFARIN
     Route: 048
     Dates: start: 2009
  507. WARFARIN [Suspect]
     Active Substance: WARFARIN
     Route: 048
     Dates: start: 2009
  508. WARFARIN [Suspect]
     Active Substance: WARFARIN
     Route: 048
  509. WARFARIN [Suspect]
     Active Substance: WARFARIN
     Dates: start: 2009
  510. WARFARIN [Suspect]
     Active Substance: WARFARIN
     Dates: start: 2009
  511. WARFARIN [Suspect]
     Active Substance: WARFARIN
     Dates: start: 2009
  512. WARFARIN [Suspect]
     Active Substance: WARFARIN
     Route: 048
  513. WARFARIN SODIUM [Suspect]
     Active Substance: WARFARIN SODIUM
     Indication: Deep vein thrombosis
     Route: 048
  514. WARFARIN SODIUM [Suspect]
     Active Substance: WARFARIN SODIUM
     Indication: Colitis ulcerative
     Route: 065
     Dates: start: 2019
  515. WARFARIN SODIUM [Suspect]
     Active Substance: WARFARIN SODIUM
     Route: 048
  516. WARFARIN SODIUM [Suspect]
     Active Substance: WARFARIN SODIUM
     Route: 048
  517. WARFARIN SODIUM [Suspect]
     Active Substance: WARFARIN SODIUM
     Route: 048
  518. WARFARIN SODIUM [Suspect]
     Active Substance: WARFARIN SODIUM
     Route: 048
  519. WARFARIN SODIUM [Suspect]
     Active Substance: WARFARIN SODIUM
     Route: 048
  520. WARFARIN SODIUM [Suspect]
     Active Substance: WARFARIN SODIUM
  521. WARFARIN SODIUM [Suspect]
     Active Substance: WARFARIN SODIUM
  522. WARFARIN SODIUM [Suspect]
     Active Substance: WARFARIN SODIUM
     Route: 048
  523. WARFARIN SODIUM [Suspect]
     Active Substance: WARFARIN SODIUM
     Route: 048
  524. WARFARIN SODIUM [Suspect]
     Active Substance: WARFARIN SODIUM
     Route: 048
  525. WARFARIN SODIUM [Suspect]
     Active Substance: WARFARIN SODIUM
     Route: 048
  526. WARFARIN SODIUM [Suspect]
     Active Substance: WARFARIN SODIUM
     Route: 048
  527. WARFARIN SODIUM [Suspect]
     Active Substance: WARFARIN SODIUM
     Route: 048
  528. WARFARIN SODIUM [Suspect]
     Active Substance: WARFARIN SODIUM
  529. WARFARIN SODIUM [Suspect]
     Active Substance: WARFARIN SODIUM
  530. WARFARIN SODIUM [Suspect]
     Active Substance: WARFARIN SODIUM
  531. WARFARIN SODIUM [Suspect]
     Active Substance: WARFARIN SODIUM
  532. WARFARIN SODIUM [Suspect]
     Active Substance: WARFARIN SODIUM
     Indication: Colitis ulcerative
     Route: 048
     Dates: start: 201707
  533. WARFARIN SODIUM [Suspect]
     Active Substance: WARFARIN SODIUM
     Indication: Deep vein thrombosis
     Route: 048
     Dates: start: 201707
  534. WARFARIN SODIUM [Suspect]
     Active Substance: WARFARIN SODIUM
     Route: 048
     Dates: start: 2009, end: 2009
  535. WARFARIN SODIUM [Suspect]
     Active Substance: WARFARIN SODIUM
     Route: 048
     Dates: start: 2009, end: 2009
  536. WARFARIN SODIUM [Suspect]
     Active Substance: WARFARIN SODIUM
     Route: 065
     Dates: start: 2019
  537. WARFARIN SODIUM [Suspect]
     Active Substance: WARFARIN SODIUM
     Dates: end: 2019
  538. WARFARIN SODIUM [Suspect]
     Active Substance: WARFARIN SODIUM
     Route: 048
     Dates: start: 2009, end: 2009
  539. WARFARIN SODIUM [Suspect]
     Active Substance: WARFARIN SODIUM
     Route: 048
     Dates: start: 2009, end: 2009
  540. WARFARIN SODIUM [Suspect]
     Active Substance: WARFARIN SODIUM
     Route: 048
     Dates: start: 2009, end: 2009
  541. WARFARIN SODIUM [Suspect]
     Active Substance: WARFARIN SODIUM
     Route: 048
     Dates: start: 201707
  542. WARFARIN SODIUM [Suspect]
     Active Substance: WARFARIN SODIUM
     Route: 048
     Dates: start: 201707
  543. WARFARIN SODIUM [Suspect]
     Active Substance: WARFARIN SODIUM
     Route: 048
     Dates: start: 201707
  544. WARFARIN SODIUM [Suspect]
     Active Substance: WARFARIN SODIUM
     Dates: end: 2019
  545. WARFARIN SODIUM [Suspect]
     Active Substance: WARFARIN SODIUM
     Dates: end: 2019
  546. VEDOLIZUMAB [Suspect]
     Active Substance: VEDOLIZUMAB
     Indication: Colitis ulcerative
     Route: 048
  547. VEDOLIZUMAB [Suspect]
     Active Substance: VEDOLIZUMAB
     Indication: Deep vein thrombosis
     Route: 042
     Dates: start: 2017, end: 2017
  548. VEDOLIZUMAB [Suspect]
     Active Substance: VEDOLIZUMAB
     Route: 042
     Dates: start: 2017, end: 2017
  549. VEDOLIZUMAB [Suspect]
     Active Substance: VEDOLIZUMAB
     Route: 042
     Dates: start: 2017, end: 2017
  550. VEDOLIZUMAB [Suspect]
     Active Substance: VEDOLIZUMAB
     Route: 042
     Dates: start: 2017, end: 2017
  551. VEDOLIZUMAB [Suspect]
     Active Substance: VEDOLIZUMAB
     Route: 048
  552. VEDOLIZUMAB [Suspect]
     Active Substance: VEDOLIZUMAB
     Route: 048
  553. VEDOLIZUMAB [Suspect]
     Active Substance: VEDOLIZUMAB
     Route: 048
  554. LATANOPROST [Concomitant]
     Active Substance: LATANOPROST
     Indication: Crohn^s disease
     Route: 065
  555. LATANOPROST [Concomitant]
     Active Substance: LATANOPROST
     Indication: Colitis ulcerative
     Route: 065
  556. LATANOPROST [Concomitant]
     Active Substance: LATANOPROST
  557. LATANOPROST [Concomitant]
     Active Substance: LATANOPROST
  558. LATANOPROST [Concomitant]
     Active Substance: LATANOPROST
  559. LATANOPROST [Concomitant]
     Active Substance: LATANOPROST
  560. LATANOPROST [Concomitant]
     Active Substance: LATANOPROST
  561. FESOTERODINE FUMARATE [Concomitant]
     Active Substance: FESOTERODINE FUMARATE
     Indication: Product used for unknown indication
     Route: 065
  562. FESOTERODINE FUMARATE [Concomitant]
     Active Substance: FESOTERODINE FUMARATE
  563. FESOTERODINE FUMARATE [Concomitant]
     Active Substance: FESOTERODINE FUMARATE
  564. FESOTERODINE FUMARATE [Concomitant]
     Active Substance: FESOTERODINE FUMARATE
  565. FESOTERODINE FUMARATE [Concomitant]
     Active Substance: FESOTERODINE FUMARATE
  566. POLYETHYLENE GLYCOLS [Concomitant]
     Active Substance: POLYETHYLENE GLYCOLS
     Indication: Product used for unknown indication
     Route: 065
  567. POLYETHYLENE GLYCOLS [Concomitant]
     Active Substance: POLYETHYLENE GLYCOLS
  568. POLYETHYLENE GLYCOL 3350\POTASSIUM CHLORIDE\SODIUM BICARBONATE\SODIUM [Concomitant]
     Active Substance: POLYETHYLENE GLYCOL 3350\POTASSIUM CHLORIDE\SODIUM BICARBONATE\SODIUM CHLORIDE
     Indication: Ill-defined disorder
     Route: 065
  569. POLYETHYLENE GLYCOL 3350\POTASSIUM CHLORIDE\SODIUM BICARBONATE\SODIUM [Concomitant]
     Active Substance: POLYETHYLENE GLYCOL 3350\POTASSIUM CHLORIDE\SODIUM BICARBONATE\SODIUM CHLORIDE
     Indication: Product used for unknown indication
  570. POLYETHYLENE GLYCOL 3350\POTASSIUM CHLORIDE\SODIUM BICARBONATE\SODIUM [Concomitant]
     Active Substance: POLYETHYLENE GLYCOL 3350\POTASSIUM CHLORIDE\SODIUM BICARBONATE\SODIUM CHLORIDE
  571. AMLODIPINE BESYLATE [Concomitant]
     Active Substance: AMLODIPINE BESYLATE
     Indication: Product used for unknown indication
     Route: 065
  572. AMLODIPINE BESYLATE [Concomitant]
     Active Substance: AMLODIPINE BESYLATE
  573. AMLODIPINE BESYLATE [Concomitant]
     Active Substance: AMLODIPINE BESYLATE
  574. AMLODIPINE BESYLATE [Concomitant]
     Active Substance: AMLODIPINE BESYLATE
  575. AMLODIPINE BESYLATE [Concomitant]
     Active Substance: AMLODIPINE BESYLATE
  576. ATORVASTATIN CALCIUM [Concomitant]
     Active Substance: ATORVASTATIN CALCIUM
     Indication: Product used for unknown indication
     Route: 065
  577. ATORVASTATIN CALCIUM [Concomitant]
     Active Substance: ATORVASTATIN CALCIUM
  578. ATORVASTATIN CALCIUM [Concomitant]
     Active Substance: ATORVASTATIN CALCIUM
  579. ATORVASTATIN CALCIUM [Concomitant]
     Active Substance: ATORVASTATIN CALCIUM
  580. ATORVASTATIN CALCIUM [Concomitant]
     Active Substance: ATORVASTATIN CALCIUM
  581. DORZOLAMIDE HYDROCHLORIDE [Concomitant]
     Active Substance: DORZOLAMIDE HYDROCHLORIDE
     Indication: Ill-defined disorder
     Route: 065
  582. DORZOLAMIDE HYDROCHLORIDE [Concomitant]
     Active Substance: DORZOLAMIDE HYDROCHLORIDE
     Indication: Product used for unknown indication
  583. DORZOLAMIDE HYDROCHLORIDE [Concomitant]
     Active Substance: DORZOLAMIDE HYDROCHLORIDE
  584. DORZOLAMIDE HYDROCHLORIDE [Concomitant]
     Active Substance: DORZOLAMIDE HYDROCHLORIDE
  585. DORZOLAMIDE HYDROCHLORIDE [Concomitant]
     Active Substance: DORZOLAMIDE HYDROCHLORIDE
  586. RAMIPRIL [Concomitant]
     Active Substance: RAMIPRIL
     Indication: Ill-defined disorder
     Route: 065
  587. RAMIPRIL [Concomitant]
     Active Substance: RAMIPRIL
  588. RAMIPRIL [Concomitant]
     Active Substance: RAMIPRIL
  589. RAMIPRIL [Concomitant]
     Active Substance: RAMIPRIL
  590. RAMIPRIL [Concomitant]
     Active Substance: RAMIPRIL
  591. RIVAROXABAN [Concomitant]
     Active Substance: RIVAROXABAN
     Indication: Ill-defined disorder
     Route: 065
  592. RIVAROXABAN [Concomitant]
     Active Substance: RIVAROXABAN
     Indication: Product used for unknown indication
  593. RIVAROXABAN [Concomitant]
     Active Substance: RIVAROXABAN
  594. RIVAROXABAN [Concomitant]
     Active Substance: RIVAROXABAN
  595. RIVAROXABAN [Concomitant]
     Active Substance: RIVAROXABAN
  596. METHOTREXATE [Concomitant]
     Active Substance: METHOTREXATE
     Indication: Colitis ulcerative
     Route: 065
  597. METHOTREXATE [Concomitant]
     Active Substance: METHOTREXATE
     Route: 065
  598. METHOTREXATE [Concomitant]
     Active Substance: METHOTREXATE
     Route: 065
     Dates: start: 20090101, end: 20160101
  599. METHOTREXATE [Concomitant]
     Active Substance: METHOTREXATE
     Route: 065
     Dates: start: 201709, end: 201709
  600. METHOTREXATE [Concomitant]
     Active Substance: METHOTREXATE
     Route: 065
     Dates: start: 201709, end: 201709
  601. METHOTREXATE [Concomitant]
     Active Substance: METHOTREXATE
     Route: 065
  602. METHOTREXATE [Concomitant]
     Active Substance: METHOTREXATE
     Route: 065
  603. METHOTREXATE [Concomitant]
     Active Substance: METHOTREXATE
  604. METHOTREXATE [Concomitant]
     Active Substance: METHOTREXATE
  605. METHOTREXATE [Concomitant]
     Active Substance: METHOTREXATE
  606. METHOTREXATE [Concomitant]
     Active Substance: METHOTREXATE
  607. METHOTREXATE [Concomitant]
     Active Substance: METHOTREXATE
  608. METHOTREXATE [Concomitant]
     Active Substance: METHOTREXATE
  609. METHOTREXATE [Concomitant]
     Active Substance: METHOTREXATE
  610. METHOTREXATE [Concomitant]
     Active Substance: METHOTREXATE
  611. METHOTREXATE [Concomitant]
     Active Substance: METHOTREXATE
  612. METHOTREXATE [Concomitant]
     Active Substance: METHOTREXATE
  613. METHOTREXATE [Concomitant]
     Active Substance: METHOTREXATE
  614. METHOTREXATE [Concomitant]
     Active Substance: METHOTREXATE
  615. METHOTREXATE [Concomitant]
     Active Substance: METHOTREXATE
     Dates: start: 20090101, end: 20160101
  616. TAMSULOSIN HYDROCHLORIDE [Concomitant]
     Active Substance: TAMSULOSIN HYDROCHLORIDE
     Indication: Ill-defined disorder
     Route: 065
  617. TAMSULOSIN HYDROCHLORIDE [Concomitant]
     Active Substance: TAMSULOSIN HYDROCHLORIDE
  618. TAMSULOSIN HYDROCHLORIDE [Concomitant]
     Active Substance: TAMSULOSIN HYDROCHLORIDE
  619. TAMSULOSIN HYDROCHLORIDE [Concomitant]
     Active Substance: TAMSULOSIN HYDROCHLORIDE
  620. TAMSULOSIN HYDROCHLORIDE [Concomitant]
     Active Substance: TAMSULOSIN HYDROCHLORIDE
  621. FOLIC ACID [Concomitant]
     Active Substance: FOLIC ACID
     Indication: Ill-defined disorder
     Route: 065
  622. FOLIC ACID [Concomitant]
     Active Substance: FOLIC ACID
  623. FOLIC ACID [Concomitant]
     Active Substance: FOLIC ACID
  624. FOLIC ACID [Concomitant]
     Active Substance: FOLIC ACID
  625. FOLIC ACID [Concomitant]
     Active Substance: FOLIC ACID
  626. XELJANZ [Concomitant]
     Active Substance: TOFACITINIB CITRATE
     Indication: Colitis ulcerative
     Route: 048
  627. XELJANZ [Concomitant]
     Active Substance: TOFACITINIB CITRATE
     Route: 048
  628. XELJANZ [Concomitant]
     Active Substance: TOFACITINIB CITRATE
     Route: 048
  629. XELJANZ [Concomitant]
     Active Substance: TOFACITINIB CITRATE
     Route: 048
  630. XELJANZ [Concomitant]
     Active Substance: TOFACITINIB CITRATE
     Route: 048
  631. XELJANZ [Concomitant]
     Active Substance: TOFACITINIB CITRATE
     Route: 048
  632. XELJANZ [Concomitant]
     Active Substance: TOFACITINIB CITRATE
     Route: 048
  633. XELJANZ [Concomitant]
     Active Substance: TOFACITINIB CITRATE
     Route: 048
  634. XELJANZ [Concomitant]
     Active Substance: TOFACITINIB CITRATE
     Route: 048
  635. XELJANZ [Concomitant]
     Active Substance: TOFACITINIB CITRATE
     Route: 048
  636. XELJANZ [Concomitant]
     Active Substance: TOFACITINIB CITRATE
     Route: 048
  637. CLOBETASONE BUTYRATE [Concomitant]
     Active Substance: CLOBETASONE BUTYRATE
     Indication: Ill-defined disorder
     Route: 065
  638. CLOBETASONE BUTYRATE [Concomitant]
     Active Substance: CLOBETASONE BUTYRATE
  639. CLOBETASONE BUTYRATE [Concomitant]
     Active Substance: CLOBETASONE BUTYRATE
  640. CLOBETASONE BUTYRATE [Concomitant]
     Active Substance: CLOBETASONE BUTYRATE
  641. CLOBETASONE BUTYRATE [Concomitant]
     Active Substance: CLOBETASONE BUTYRATE
  642. BISOPROLOL [Concomitant]
     Active Substance: BISOPROLOL
     Indication: Dyscalculia
     Route: 065
  643. BISOPROLOL [Concomitant]
     Active Substance: BISOPROLOL
     Indication: Ill-defined disorder
  644. BISOPROLOL [Concomitant]
     Active Substance: BISOPROLOL
  645. BISOPROLOL [Concomitant]
     Active Substance: BISOPROLOL
  646. BISOPROLOL [Concomitant]
     Active Substance: BISOPROLOL
  647. EMPAGLIFLOZIN [Concomitant]
     Active Substance: EMPAGLIFLOZIN
     Indication: Ill-defined disorder
     Route: 065
  648. EMPAGLIFLOZIN [Concomitant]
     Active Substance: EMPAGLIFLOZIN
  649. EMPAGLIFLOZIN [Concomitant]
     Active Substance: EMPAGLIFLOZIN
  650. EMPAGLIFLOZIN [Concomitant]
     Active Substance: EMPAGLIFLOZIN
  651. EMPAGLIFLOZIN [Concomitant]
     Active Substance: EMPAGLIFLOZIN
  652. CITALOPRAM [Concomitant]
     Active Substance: CITALOPRAM
     Indication: Ill-defined disorder
     Route: 065
  653. CITALOPRAM [Concomitant]
     Active Substance: CITALOPRAM
  654. CITALOPRAM [Concomitant]
     Active Substance: CITALOPRAM
  655. CITALOPRAM [Concomitant]
     Active Substance: CITALOPRAM
  656. CITALOPRAM [Concomitant]
     Active Substance: CITALOPRAM
  657. PRAVASTATIN [Concomitant]
     Active Substance: PRAVASTATIN
     Indication: Ill-defined disorder
     Route: 065
  658. PRAVASTATIN [Concomitant]
     Active Substance: PRAVASTATIN
  659. PRAVASTATIN [Concomitant]
     Active Substance: PRAVASTATIN
  660. PRAVASTATIN [Concomitant]
     Active Substance: PRAVASTATIN
  661. PRAVASTATIN [Concomitant]
     Active Substance: PRAVASTATIN
  662. LANSOPRAZOLE [Concomitant]
     Active Substance: LANSOPRAZOLE
     Indication: Ill-defined disorder
     Route: 065
  663. LANSOPRAZOLE [Concomitant]
     Active Substance: LANSOPRAZOLE
  664. LANSOPRAZOLE [Concomitant]
     Active Substance: LANSOPRAZOLE
  665. LANSOPRAZOLE [Concomitant]
     Active Substance: LANSOPRAZOLE
  666. LANSOPRAZOLE [Concomitant]
     Active Substance: LANSOPRAZOLE
  667. ACETAMINOPHEN [Concomitant]
     Active Substance: ACETAMINOPHEN
     Indication: Product used for unknown indication
     Route: 065
  668. ACETAMINOPHEN [Concomitant]
     Active Substance: ACETAMINOPHEN
  669. ACETAMINOPHEN [Concomitant]
     Active Substance: ACETAMINOPHEN
  670. ACETAMINOPHEN [Concomitant]
     Active Substance: ACETAMINOPHEN
  671. ACETAMINOPHEN [Concomitant]
     Active Substance: ACETAMINOPHEN
  672. TETRAHYDROZOLINE HYDROCHLORIDE [Concomitant]
     Active Substance: TETRAHYDROZOLINE HYDROCHLORIDE
     Indication: Product used for unknown indication
     Route: 065
  673. TETRAHYDROZOLINE HYDROCHLORIDE [Concomitant]
     Active Substance: TETRAHYDROZOLINE HYDROCHLORIDE
     Route: 065
  674. TETRAHYDROZOLINE HYDROCHLORIDE [Concomitant]
     Active Substance: TETRAHYDROZOLINE HYDROCHLORIDE
  675. TETRAHYDROZOLINE HYDROCHLORIDE [Concomitant]
     Active Substance: TETRAHYDROZOLINE HYDROCHLORIDE
  676. TETRAHYDROZOLINE HYDROCHLORIDE [Concomitant]
     Active Substance: TETRAHYDROZOLINE HYDROCHLORIDE
  677. TETRAHYDROZOLINE HYDROCHLORIDE [Concomitant]
     Active Substance: TETRAHYDROZOLINE HYDROCHLORIDE
  678. TETRAHYDROZOLINE HYDROCHLORIDE [Concomitant]
     Active Substance: TETRAHYDROZOLINE HYDROCHLORIDE
  679. NITROFURANTOIN [Concomitant]
     Active Substance: NITROFURANTOIN
     Indication: Ill-defined disorder
     Route: 065
  680. NITROFURANTOIN [Concomitant]
     Active Substance: NITROFURANTOIN
  681. NITROFURANTOIN [Concomitant]
     Active Substance: NITROFURANTOIN
  682. NITROFURANTOIN [Concomitant]
     Active Substance: NITROFURANTOIN
  683. NITROFURANTOIN [Concomitant]
     Active Substance: NITROFURANTOIN
  684. CALCIUM CARBONATE\MAGNESIUM CARBONATE [Concomitant]
     Active Substance: CALCIUM CARBONATE\MAGNESIUM CARBONATE
     Indication: Product used for unknown indication
     Route: 065
  685. MINERAL OIL [Concomitant]
     Active Substance: MINERAL OIL
     Indication: Product used for unknown indication
     Route: 065
  686. ALGINIC ACID\ALUMINUM HYDROXIDE\MAGNESIUM TRISILICATE [Concomitant]
     Active Substance: ALGINIC ACID\ALUMINUM HYDROXIDE\MAGNESIUM TRISILICATE
     Indication: Product used for unknown indication
     Route: 065
  687. CALCIUM CARBONATE\CHOLECALCIFEROL [Concomitant]
     Active Substance: CALCIUM CARBONATE\CHOLECALCIFEROL
     Indication: Product used for unknown indication
     Route: 065
  688. CALCIUM CARBONATE\CHOLECALCIFEROL [Concomitant]
     Active Substance: CALCIUM CARBONATE\CHOLECALCIFEROL
  689. CALCIUM CARBONATE\CHOLECALCIFEROL [Concomitant]
     Active Substance: CALCIUM CARBONATE\CHOLECALCIFEROL
  690. CALCIUM CARBONATE\CHOLECALCIFEROL [Concomitant]
     Active Substance: CALCIUM CARBONATE\CHOLECALCIFEROL
  691. LYRICA [Concomitant]
     Active Substance: PREGABALIN
     Indication: Ill-defined disorder
     Route: 065
  692. LYRICA [Concomitant]
     Active Substance: PREGABALIN
  693. LYRICA [Concomitant]
     Active Substance: PREGABALIN
  694. LYRICA [Concomitant]
     Active Substance: PREGABALIN
  695. LYRICA [Concomitant]
     Active Substance: PREGABALIN
  696. POLYETHYLENE GLYCOL 3350\POTASSIUM CHLORIDE\SODIUM BICARBONATE\SODIUM [Concomitant]
     Active Substance: POLYETHYLENE GLYCOL 3350\POTASSIUM CHLORIDE\SODIUM BICARBONATE\SODIUM CHLORIDE
     Indication: Product used for unknown indication
     Route: 065
  697. POLYETHYLENE GLYCOL 3350\POTASSIUM CHLORIDE\SODIUM BICARBONATE\SODIUM [Concomitant]
     Active Substance: POLYETHYLENE GLYCOL 3350\POTASSIUM CHLORIDE\SODIUM BICARBONATE\SODIUM CHLORIDE
  698. POLYETHYLENE GLYCOL 3350\POTASSIUM CHLORIDE\SODIUM BICARBONATE\SODIUM [Concomitant]
     Active Substance: POLYETHYLENE GLYCOL 3350\POTASSIUM CHLORIDE\SODIUM BICARBONATE\SODIUM CHLORIDE
  699. POLYETHYLENE GLYCOL 3350\POTASSIUM CHLORIDE\SODIUM BICARBONATE\SODIUM [Concomitant]
     Active Substance: POLYETHYLENE GLYCOL 3350\POTASSIUM CHLORIDE\SODIUM BICARBONATE\SODIUM CHLORIDE
  700. POLYETHYLENE GLYCOL 3350\POTASSIUM CHLORIDE\SODIUM BICARBONATE\SODIUM [Concomitant]
     Active Substance: POLYETHYLENE GLYCOL 3350\POTASSIUM CHLORIDE\SODIUM BICARBONATE\SODIUM CHLORIDE
  701. LATANOPROST [Concomitant]
     Active Substance: LATANOPROST
     Indication: Product used for unknown indication
     Route: 065
  702. LATANOPROST [Concomitant]
     Active Substance: LATANOPROST
  703. LATANOPROST [Concomitant]
     Active Substance: LATANOPROST
  704. LATANOPROST [Concomitant]
     Active Substance: LATANOPROST
  705. LATANOPROST [Concomitant]
     Active Substance: LATANOPROST
  706. BETNOVATE [Concomitant]
     Active Substance: BETAMETHASONE
     Indication: Product used for unknown indication
     Route: 065
  707. BETNOVATE [Concomitant]
     Active Substance: BETAMETHASONE
  708. BETNOVATE [Concomitant]
     Active Substance: BETAMETHASONE
  709. BETNOVATE [Concomitant]
     Active Substance: BETAMETHASONE
  710. BETNOVATE [Concomitant]
     Active Substance: BETAMETHASONE
  711. MOVICOL [Concomitant]
     Active Substance: POLYETHYLENE GLYCOL 3350\POTASSIUM CHLORIDE\SODIUM BICARBONATE\SODIUM CHLORIDE
     Indication: Product used for unknown indication
     Route: 065
  712. ALGINIC ACID;ALUMINIUM HYDROXIDE GEL, DRIED;CALCIUM CARBONATE;MAGNESIU [Concomitant]
     Indication: Product used for unknown indication
     Route: 065
  713. ALUMINIUM HYDROXIDE;CALCIUM CARBONATE;SODIUM ALGINATE;SODIUM BICARBONA [Concomitant]
     Indication: Product used for unknown indication
     Route: 065
  714. CALCIUM CARBONATE\SODIUM ALGINATE\SODIUM BICARBONATE [Concomitant]
     Active Substance: CALCIUM CARBONATE\SODIUM ALGINATE\SODIUM BICARBONATE
     Indication: Product used for unknown indication
     Route: 065
  715. CALCIUM CARBONATE\SODIUM ALGINATE\SODIUM BICARBONATE [Concomitant]
     Active Substance: CALCIUM CARBONATE\SODIUM ALGINATE\SODIUM BICARBONATE
  716. CALCIUM CARBONATE\SODIUM ALGINATE\SODIUM BICARBONATE [Concomitant]
     Active Substance: CALCIUM CARBONATE\SODIUM ALGINATE\SODIUM BICARBONATE
  717. CALCIUM CARBONATE\CHOLECALCIFEROL [Concomitant]
     Active Substance: CALCIUM CARBONATE\CHOLECALCIFEROL
     Indication: Product used for unknown indication
     Route: 065
  718. CALCIUM CARBONATE\CHOLECALCIFEROL [Concomitant]
     Active Substance: CALCIUM CARBONATE\CHOLECALCIFEROL
  719. MINERAL OIL [Concomitant]
     Active Substance: MINERAL OIL
     Indication: Ill-defined disorder
     Route: 065
  720. MINERAL OIL [Concomitant]
     Active Substance: MINERAL OIL
  721. MINERAL OIL [Concomitant]
     Active Substance: MINERAL OIL
  722. MINERAL OIL [Concomitant]
     Active Substance: MINERAL OIL
  723. MINERAL OIL [Concomitant]
     Active Substance: MINERAL OIL
  724. NAPHAZOLINE HYDROCHLORIDE [Concomitant]
     Active Substance: NAPHAZOLINE HYDROCHLORIDE
     Indication: Ill-defined disorder
     Route: 065
  725. NAPHAZOLINE HYDROCHLORIDE [Concomitant]
     Active Substance: NAPHAZOLINE HYDROCHLORIDE
  726. NAPHAZOLINE HYDROCHLORIDE [Concomitant]
     Active Substance: NAPHAZOLINE HYDROCHLORIDE
  727. NAPHAZOLINE HYDROCHLORIDE [Concomitant]
     Active Substance: NAPHAZOLINE HYDROCHLORIDE
  728. NAPHAZOLINE HYDROCHLORIDE [Concomitant]
     Active Substance: NAPHAZOLINE HYDROCHLORIDE
  729. PARAFFIN [Concomitant]
     Active Substance: PARAFFIN
     Indication: Product used for unknown indication
     Route: 065
  730. TETRAHYDROZOLINE HYDROCHLORIDE [Concomitant]
     Active Substance: TETRAHYDROZOLINE HYDROCHLORIDE
     Indication: Product used for unknown indication
     Route: 065
  731. TOFACITINIB CITRATE [Concomitant]
     Active Substance: TOFACITINIB CITRATE
     Indication: Ill-defined disorder
     Route: 065
  732. TOFACITINIB CITRATE [Concomitant]
     Active Substance: TOFACITINIB CITRATE
     Indication: Product used for unknown indication
     Route: 065
  733. TOFACITINIB CITRATE [Concomitant]
     Active Substance: TOFACITINIB CITRATE
  734. TOFACITINIB CITRATE [Concomitant]
     Active Substance: TOFACITINIB CITRATE
  735. TOFACITINIB CITRATE [Concomitant]
     Active Substance: TOFACITINIB CITRATE

REACTIONS (53)
  - Arthritis [Not Recovered/Not Resolved]
  - Bronchiectasis [Not Recovered/Not Resolved]
  - Burns second degree [Not Recovered/Not Resolved]
  - Cardiac murmur [Not Recovered/Not Resolved]
  - Catarrh [Not Recovered/Not Resolved]
  - Cerebrovascular accident [Not Recovered/Not Resolved]
  - COVID-19 [Not Recovered/Not Resolved]
  - Deep vein thrombosis [Unknown]
  - Dysgeusia [Not Recovered/Not Resolved]
  - Frequent bowel movements [Not Recovered/Not Resolved]
  - Gingival pain [Not Recovered/Not Resolved]
  - Haematochezia [Not Recovered/Not Resolved]
  - Hypopnoea [Not Recovered/Not Resolved]
  - Impaired quality of life [Unknown]
  - Impaired work ability [Not Recovered/Not Resolved]
  - Loss of personal independence in daily activities [Not Recovered/Not Resolved]
  - Migraine [Not Recovered/Not Resolved]
  - Nightmare [Not Recovered/Not Resolved]
  - Pain [Not Recovered/Not Resolved]
  - Pain in extremity [Not Recovered/Not Resolved]
  - Palpitations [Not Recovered/Not Resolved]
  - Parosmia [Not Recovered/Not Resolved]
  - Pulmonary embolism [Not Recovered/Not Resolved]
  - Depression [Not Recovered/Not Resolved]
  - Rhinitis [Not Recovered/Not Resolved]
  - Stress [Not Recovered/Not Resolved]
  - Swollen tongue [Not Recovered/Not Resolved]
  - Weight decreased [Not Recovered/Not Resolved]
  - Vertigo [Not Recovered/Not Resolved]
  - Abdominal discomfort [Not Recovered/Not Resolved]
  - Somnolence [Not Recovered/Not Resolved]
  - Systemic lupus erythematosus [Not Recovered/Not Resolved]
  - Rectal haemorrhage [Unknown]
  - Tubulointerstitial nephritis [Not Recovered/Not Resolved]
  - Tinnitus [Not Recovered/Not Resolved]
  - Rash [Not Recovered/Not Resolved]
  - Colitis ulcerative [Not Recovered/Not Resolved]
  - Confusional state [Not Recovered/Not Resolved]
  - Drug ineffective [Unknown]
  - Headache [Not Recovered/Not Resolved]
  - Eczema [Not Recovered/Not Resolved]
  - Fatigue [Not Recovered/Not Resolved]
  - Condition aggravated [Unknown]
  - Colitis ulcerative [Unknown]
  - Steroid dependence [Not Recovered/Not Resolved]
  - Pyrexia [Not Recovered/Not Resolved]
  - Medication error [Unknown]
  - Off label use [Not Recovered/Not Resolved]
  - Inappropriate schedule of product administration [Not Recovered/Not Resolved]
  - Product use in unapproved indication [Unknown]
  - Intentional product use issue [Not Recovered/Not Resolved]
  - Accidental overdose [Not Recovered/Not Resolved]
  - Alcohol poisoning [Not Recovered/Not Resolved]
